FAERS Safety Report 9618131 (Version 1)
Quarter: 2013Q4

REPORT INFORMATION
  Report Type: Report from Study
  Country: CL (occurrence: CL)
  Receive Date: 20131014
  Receipt Date: 20131014
  Transmission Date: 20140711
  Serious: Yes (Other)
  Sender: FDA-Public Use
  Company Number: CL-ROCHE-1288316

PATIENT
  Sex: Male

DRUGS (1)
  1. XELODA [Suspect]
     Indication: COLON CANCER
     Dosage: ON 24/SEP/2013, MOST RECENT DOSE.
     Route: 048
     Dates: start: 20130911, end: 20131003

REACTIONS (1)
  - Carcinoembryonic antigen increased [Not Recovered/Not Resolved]
